FAERS Safety Report 5132390-9 (Version None)
Quarter: 2006Q4

REPORT INFORMATION
  Report Type: 
  Country: None (occurrence: None)
  Receive Date: 20061020
  Receipt Date: 20061020
  Transmission Date: 20070319
  Serious: Yes (Hospitalization)
  Sender: FDA-Public Use
  Company Number: None

PATIENT
  Sex: Male
  Weight: 114.1 kg

DRUGS (16)
  1. INTRON A [Suspect]
     Dosage: 220 MU
  2. ASPIRIN [Concomitant]
  3. AZO [Concomitant]
  4. ACETAMINOPHEN [Concomitant]
  5. BENICAR [Concomitant]
  6. HUMALOG [Concomitant]
  7. LANTIS [Concomitant]
  8. LASIX [Concomitant]
  9. LYRICA [Concomitant]
  10. METFORMIN HCL ER [Concomitant]
  11. NAPROXEN [Concomitant]
  12. PROSVENT [Concomitant]
  13. VYTORIN [Concomitant]
  14. ALPRAZOLAM [Concomitant]
  15. ONDANSETRON [Concomitant]
  16. PROCHLORPERAZINE [Concomitant]

REACTIONS (15)
  - ACUTE RESPIRATORY DISTRESS SYNDROME [None]
  - CATHETER RELATED COMPLICATION [None]
  - COUGH [None]
  - DEPRESSED LEVEL OF CONSCIOUSNESS [None]
  - DIALYSIS [None]
  - FATIGUE [None]
  - HAEMOPTYSIS [None]
  - HYPOTENSION [None]
  - HYPOXIA [None]
  - LUNG INFILTRATION [None]
  - PLATELET COUNT DECREASED [None]
  - PURULENCE [None]
  - RENAL FAILURE [None]
  - SEPSIS [None]
  - STAPHYLOCOCCAL BACTERAEMIA [None]
